FAERS Safety Report 24257973 (Version 1)
Quarter: 2024Q3

REPORT INFORMATION
  Report Type: Spontaneous
  Country: US (occurrence: US)
  Receive Date: 20240828
  Receipt Date: 20240828
  Transmission Date: 20241016
  Serious: No
  Sender: XTTRIUM
  Company Number: US-Xttrium Laboratories, Inc-2160918

PATIENT
  Sex: Female

DRUGS (1)
  1. CHLORHEXIDINE GLUCONATE [Suspect]
     Active Substance: CHLORHEXIDINE GLUCONATE
     Route: 048
     Dates: start: 20240812, end: 20240815

REACTIONS (1)
  - Tooth discolouration [Not Recovered/Not Resolved]

NARRATIVE: CASE EVENT DATE: 20240812
